FAERS Safety Report 20759331 (Version 1)
Quarter: 2022Q2

REPORT INFORMATION
  Report Type: Spontaneous
  Country: US (occurrence: US)
  Receive Date: 20220427
  Receipt Date: 20220427
  Transmission Date: 20220721
  Serious: No
  Sender: FDA-Public Use
  Company Number: US-BioHaven Pharmaceuticals-2022BHV000191

PATIENT
  Age: 36 Year
  Sex: Female
  Weight: 52.664 kg

DRUGS (4)
  1. NURTEC ODT [Suspect]
     Active Substance: RIMEGEPANT SULFATE
     Indication: Migraine
     Route: 048
     Dates: start: 20220121
  2. PFIZER-BIONTECH COVID-19 VACCINE [Concomitant]
     Active Substance: TOZINAMERAN
     Indication: COVID-19
     Dosage: PATIENT WAS DOUBLE VACCINATED AND WAS NOT DUE FOR HER BOOSTER AT THE TIME OF REPORT
     Route: 065
  3. NASOGEL [Concomitant]
     Indication: Paranasal sinus discomfort
     Route: 065
     Dates: start: 20220121
  4. NASOGEL [Concomitant]
     Indication: Nasal congestion

REACTIONS (2)
  - Therapeutic product effect delayed [Not Recovered/Not Resolved]
  - Off label use [Not Recovered/Not Resolved]

NARRATIVE: CASE EVENT DATE: 20220121
